FAERS Safety Report 8965676 (Version 1)
Quarter: 2012Q4

REPORT INFORMATION
  Report Type: Spontaneous
  Country: GB (occurrence: None)
  Receive Date: 20121206
  Receipt Date: 20121206
  Transmission Date: 20130627
  Serious: Yes (Disabling, Other)
  Sender: FDA-Public Use
  Company Number: AUR-APL-2012-05056

PATIENT
  Age: 53 Year
  Sex: Female
  Weight: 50 kg

DRUGS (3)
  1. MIRTAZAPINE (MIRTAZAPINE) [Suspect]
     Indication: APPETITE LOST
     Route: 048
     Dates: start: 20120406
  2. DIAZEPAM (DIAZEPAM) [Concomitant]
  3. LITHIUM CARBONATE (LITHIUM CARBONATE) [Concomitant]

REACTIONS (5)
  - Restless legs syndrome [None]
  - Agitated depression [None]
  - Feeling abnormal [None]
  - Liver function test abnormal [None]
  - Exocrine pancreatic function test abnormal [None]
